FAERS Safety Report 5606020-3 (Version None)
Quarter: 2008Q1

REPORT INFORMATION
  Report Type: 
  Country: None (occurrence: None)
  Receive Date: 20080123
  Receipt Date: 20080123
  Transmission Date: 20080703
  Serious: Yes (Life-Threatening, Hospitalization)
  Sender: FDA-Public Use
  Company Number: None

PATIENT
  Age: 51 Year
  Sex: Male
  Weight: 90.7194 kg

DRUGS (2)
  1. CLINDAMYCIN   300 MG   CVC PHARMACY [Suspect]
     Indication: ORAL SURGERY
     Dosage: 300MG  1 EVERY 6 HOURS  PO
     Route: 048
     Dates: start: 20080111, end: 20080117
  2. CLINDAMYCIN   300 MG   CVC PHARMACY [Suspect]
     Indication: TOOTH DISORDER
     Dosage: 300MG  1 EVERY 6 HOURS  PO
     Route: 048
     Dates: start: 20080111, end: 20080117

REACTIONS (3)
  - PRURITUS [None]
  - RASH [None]
  - THROAT TIGHTNESS [None]
